FAERS Safety Report 4990119-9 (Version None)
Quarter: 2006Q2

REPORT INFORMATION
  Report Type: 
  Country: None (occurrence: None)
  Receive Date: 20060503
  Receipt Date: 20051026
  Transmission Date: 20061013
  Serious: Yes (Hospitalization, Disabling)
  Sender: FDA-Public Use
  Company Number: US-MERCK-0510USA09461

PATIENT
  Age: 39 Year
  Sex: Male
  Weight: 75 kg

DRUGS (3)
  1. VIOXX [Suspect]
     Indication: ARTHRITIS
     Route: 048
     Dates: start: 20001010, end: 20010121
  2. LORTAB [Concomitant]
     Route: 065
  3. HYDROCODONE BITARTRATE [Concomitant]
     Route: 065

REACTIONS (8)
  - ACCIDENT AT WORK [None]
  - BLOOD CHOLESTEROL INCREASED [None]
  - DEPRESSION [None]
  - GASTROOESOPHAGEAL REFLUX DISEASE [None]
  - HERPES ZOSTER [None]
  - HYPERTENSION [None]
  - MYOCARDIAL INFARCTION [None]
  - NERVOUSNESS [None]
